FAERS Safety Report 16745617 (Version 1)
Quarter: 2019Q3

REPORT INFORMATION
  Report Type: Report from Study
  Country: CA (occurrence: CA)
  Receive Date: 20190827
  Receipt Date: 20190827
  Transmission Date: 20191005
  Serious: Yes (Death, Hospitalization, Other)
  Sender: FDA-Public Use
  Company Number: CA-PFIZER INC-2019362555

PATIENT
  Age: 34 Year
  Sex: Female
  Weight: 51 kg

DRUGS (20)
  1. GRAPE SEED [VITIS VINIFERA] [Concomitant]
     Dosage: UNK
  2. TRAMADOL. [Concomitant]
     Active Substance: TRAMADOL
     Dosage: UNK
  3. ERGOCALCIFEROL. [Concomitant]
     Active Substance: ERGOCALCIFEROL
     Dosage: UNK
  4. MACROGOL [Concomitant]
     Active Substance: POLYETHYLENE GLYCOLS
     Dosage: UNK
  5. TUMS [Concomitant]
     Active Substance: CALCIUM CARBONATE
     Dosage: UNK
  6. ADVIL [IBUPROFEN] [Concomitant]
     Active Substance: IBUPROFEN
     Dosage: UNK
  7. BENTYLOL [Concomitant]
     Active Substance: DICYCLOMINE HYDROCHLORIDE
     Dosage: UNK
  8. METOCLOPRAMIDE. [Concomitant]
     Active Substance: METOCLOPRAMIDE
     Dosage: UNK
  9. ALPHA LIPOIC ACID [Concomitant]
     Active Substance: .ALPHA.-LIPOIC ACID
     Dosage: UNK
  10. CHLOROQUINE. [Concomitant]
     Active Substance: CHLOROQUINE
     Dosage: UNK
  11. LOSEC [Concomitant]
     Active Substance: OMEPRAZOLE
     Dosage: UNK
  12. MEDROXYPROGESTERONE ACETATE. [Concomitant]
     Active Substance: MEDROXYPROGESTERONE ACETATE
     Dosage: UNK
  13. SELENIUM [Concomitant]
     Active Substance: SELENIUM
     Dosage: UNK
  14. NORMAL SALINE [Concomitant]
     Active Substance: SODIUM CHLORIDE
     Dosage: UNK
  15. ONDANSETRON [Concomitant]
     Active Substance: ONDANSETRON
     Dosage: UNK
  16. VITAMIN B12 [Concomitant]
     Active Substance: CYANOCOBALAMIN
     Dosage: UNK
  17. DOMPERIDONE [Concomitant]
     Active Substance: DOMPERIDONE
     Dosage: UNK
  18. HALOPERIDOL. [Concomitant]
     Active Substance: HALOPERIDOL
     Indication: NAUSEA
     Dosage: UNK
  19. VITAMIN B COMPLEX [Concomitant]
     Active Substance: CYANOCOBALAMIN\DEXPANTHENOL\NIACINAMIDE\PYRIDOXINE HYDROCHLORIDE\RIBOFLAVIN 5^-PHOSPHATE SODIUM\THIAMINE HYDROCHLORIDE\VITAMIN B COMPLEX
     Dosage: UNK
  20. GEMCITABINE HYDROCHLORIDE. [Suspect]
     Active Substance: GEMCITABINE HYDROCHLORIDE
     Indication: NEOPLASM MALIGNANT
     Dosage: 435 MG, EVERY 3 WEEKS
     Route: 042

REACTIONS (19)
  - Pericardial effusion [Fatal]
  - Acute kidney injury [Fatal]
  - Alanine aminotransferase increased [Fatal]
  - Hydronephrosis [Fatal]
  - Retroperitoneal mass [Fatal]
  - Pleural effusion [Fatal]
  - Anaemia [Fatal]
  - Death [Fatal]
  - Dyspnoea [Fatal]
  - Pulmonary oedema [Fatal]
  - Thrombocytopenia [Fatal]
  - General physical health deterioration [Fatal]
  - Aspartate aminotransferase increased [Fatal]
  - Cellulitis [Fatal]
  - Granuloma [Fatal]
  - Oedema peripheral [Fatal]
  - Pain [Fatal]
  - Restlessness [Fatal]
  - Glomerulonephritis [Fatal]
